FAERS Safety Report 10044997 (Version 1)
Quarter: 2014Q1

REPORT INFORMATION
  Report Type: Spontaneous
  Country: GB (occurrence: None)
  Receive Date: 20140326
  Receipt Date: 20140326
  Transmission Date: 20141002
  Serious: Yes (Other)
  Sender: FDA-Public Use
  Company Number: FK201401024

PATIENT
  Age: 52 Year
  Sex: Female
  Weight: 61.2 kg

DRUGS (5)
  1. OXALIPLATIN (MANUFACTURER UNKNOWN) (OXALIPLATIN) (OXALIPLATIN) [Suspect]
     Indication: NEOPLASM MALIGNANT
     Dosage: NOT OTHERWISE SPECIFIED
     Route: 042
     Dates: start: 20140304, end: 20140304
  2. DEXAMETHASONE [Concomitant]
  3. EPIRUBICIN [Concomitant]
  4. GRANISETRON [Concomitant]
  5. NOZINAN [Concomitant]

REACTIONS (4)
  - Hypoaesthesia [None]
  - Swollen tongue [None]
  - Paraesthesia [None]
  - Speech disorder [None]
